FAERS Safety Report 19639509 (Version 1)
Quarter: 2021Q3

REPORT INFORMATION
  Report Type: Report from Study
  Country: JP (occurrence: JP)
  Receive Date: 20210730
  Receipt Date: 20210730
  Transmission Date: 20211014
  Serious: Yes (Hospitalization)
  Sender: FDA-Public Use
  Company Number: JP-BIOGEN-2021BI00964214

PATIENT
  Age: 37 Year
  Sex: Female
  Weight: 62.6 kg

DRUGS (16)
  1. TECFIDERA [Suspect]
     Active Substance: DIMETHYL FUMARATE
     Route: 048
     Dates: start: 20181004, end: 20181010
  2. LANSOPRAZOLE OD [Concomitant]
     Active Substance: LANSOPRAZOLE
     Indication: PROPHYLAXIS
     Route: 048
     Dates: start: 20180927
  3. BUFFERIN [Concomitant]
     Active Substance: ASPIRIN
     Indication: PROPHYLAXIS
     Route: 048
     Dates: start: 20180927, end: 20181003
  4. LYRICA [Concomitant]
     Active Substance: PREGABALIN
     Indication: CERVICOBRACHIAL SYNDROME
     Route: 048
     Dates: start: 20190227
  5. AFLOQUALONE [Concomitant]
     Active Substance: AFLOQUALONE
     Indication: CERVICOBRACHIAL SYNDROME
     Route: 048
     Dates: end: 20181114
  6. AFLOQUALONE [Concomitant]
     Active Substance: AFLOQUALONE
     Route: 048
     Dates: start: 20181114, end: 20190619
  7. TECFIDERA [Suspect]
     Active Substance: DIMETHYL FUMARATE
     Indication: RELAPSING-REMITTING MULTIPLE SCLEROSIS
     Route: 048
     Dates: start: 20180927, end: 20181003
  8. ZOMIG [Concomitant]
     Active Substance: ZOLMITRIPTAN
     Indication: MIGRAINE
     Route: 048
     Dates: end: 20190130
  9. TECFIDERA [Suspect]
     Active Substance: DIMETHYL FUMARATE
     Route: 048
     Dates: start: 20181018
  10. METHYCOBIDE [Concomitant]
     Active Substance: METHYLCOBALAMIN
     Indication: CERVICOBRACHIAL SYNDROME
     Route: 048
  11. LOXOPROFEN [Concomitant]
     Active Substance: LOXOPROFEN
     Indication: MIGRAINE
     Route: 048
  12. BUFFERIN [Concomitant]
     Active Substance: ASPIRIN
     Route: 048
     Dates: start: 20181004
  13. MAXALT [Concomitant]
     Active Substance: RIZATRIPTAN BENZOATE
     Indication: MIGRAINE
     Route: 048
     Dates: start: 20190130
  14. BESTON [Concomitant]
     Indication: CERVICOBRACHIAL SYNDROME
     Route: 048
  15. TECFIDERA [Suspect]
     Active Substance: DIMETHYL FUMARATE
     Dosage: 120/240 MG
     Route: 048
     Dates: start: 20181011, end: 20181017
  16. MONTELUKAST [Concomitant]
     Active Substance: MONTELUKAST SODIUM
     Indication: PROPHYLAXIS
     Route: 048
     Dates: start: 20180927, end: 20181101

REACTIONS (4)
  - Rhinitis allergic [Recovered/Resolved]
  - Multiple sclerosis relapse [Recovered/Resolved]
  - Pharyngitis [Recovered/Resolved]
  - Eczema [Recovered/Resolved]

NARRATIVE: CASE EVENT DATE: 20181014
